FAERS Safety Report 4283074-0 (Version None)
Quarter: 2004Q1

REPORT INFORMATION
  Report Type: 
  Country: None (occurrence: None)
  Receive Date: 20040129
  Receipt Date: 20040115
  Transmission Date: 20041129
  Serious: Yes (Other)
  Sender: FDA-Public Use
  Company Number: ZANA001127

PATIENT
  Age: 48 Year
  Sex: Female

DRUGS (3)
  1. ZANAFLEX [Suspect]
     Indication: DRUG USE FOR UNKNOWN INDICATION
     Dosage: ORAL
     Route: 048
  2. GABITRIL [Suspect]
     Indication: NEUROPATHIC PAIN
     Dosage: 12 MG QD ORAL
     Route: 048
     Dates: start: 20030101
  3. KLONOPIN [Concomitant]

REACTIONS (4)
  - CONVULSION [None]
  - DRUG INTERACTION [None]
  - DYSKINESIA [None]
  - EXTRAPYRAMIDAL DISORDER [None]
